FAERS Safety Report 7003494-0 (Version None)
Quarter: 2010Q3

REPORT INFORMATION
  Report Type: 
  Country: None (occurrence: None)
  Receive Date: 20100916
  Receipt Date: 20100831
  Transmission Date: 20110219
  Serious: Yes (Death)
  Sender: FDA-Public Use
  Company Number: 1000016127

PATIENT
  Age: 43 Year
  Sex: Female

DRUGS (2)
  1. MILNACIPRAN (MILNACIPRAN HYDROCHLORIDE) (CAPSULES) [Suspect]
     Indication: DEPRESSION
     Dosage: 150 MG (150 MG, 1 IN 1 D), ORAL
     Route: 048
  2. ANALGESIC (MENTHOL/METHYLSALICYLATE) [Concomitant]

REACTIONS (1)
  - MALAISE [None]
